FAERS Safety Report 5821599-4 (Version None)
Quarter: 2008Q3

REPORT INFORMATION
  Report Type: 
  Country: None (occurrence: None)
  Receive Date: 20080722
  Receipt Date: 20080708
  Transmission Date: 20090109
  Serious: Yes (Death)
  Sender: FDA-Public Use
  Company Number: 2008018187

PATIENT
  Age: 49 Year
  Sex: Male

DRUGS (5)
  1. DIPHENHYDRAMINE HCL [Suspect]
  2. ACETAMINOPHEN [Suspect]
  3. DOXYLAMINE SUCCINATE [Suspect]
  4. RANITIDINE [Suspect]
  5. PHENOBARBITAL TAB [Suspect]

REACTIONS (1)
  - ACCIDENT [None]
